FAERS Safety Report 5284553-X (Version None)
Quarter: 2007Q2

REPORT INFORMATION
  Report Type: 
  Country: None (occurrence: None)
  Receive Date: 20070403
  Receipt Date: 20070323
  Transmission Date: 20071010
  Serious: Yes (Other)
  Sender: FDA-Public Use
  Company Number: TW-GLAXOSMITHKLINE-B0463682A

PATIENT

DRUGS (2)
  1. LAMIVUDINE [Suspect]
     Dosage: 3MGK PER DAY
     Route: 048
  2. ADEFOVIR DIPIVOXIL KIT [Concomitant]
     Route: 065

REACTIONS (5)
  - ALANINE AMINOTRANSFERASE INCREASED [None]
  - BLOOD BILIRUBIN INCREASED [None]
  - HEPATITIS B VIRUS [None]
  - JAUNDICE [None]
  - PROTHROMBIN TIME PROLONGED [None]
